FAERS Safety Report 7914158-0 (Version None)
Quarter: 2011Q4

REPORT INFORMATION
  Report Type: 
  Country: None (occurrence: None)
  Receive Date: 20111115
  Receipt Date: 20111115
  Transmission Date: 20120403
  Serious: Yes (Life-Threatening, Disabling, Other)
  Sender: FDA-Public Use
  Company Number: None

PATIENT
  Sex: Female
  Weight: 110.67 kg

DRUGS (1)
  1. ACTOS [Suspect]
     Indication: TYPE 2 DIABETES MELLITUS
     Dates: start: 20061001, end: 20090615

REACTIONS (6)
  - WEIGHT INCREASED [None]
  - GAIT DISTURBANCE [None]
  - TOOTH LOSS [None]
  - UNEVALUABLE EVENT [None]
  - TOOTH DISORDER [None]
  - CARDIAC FAILURE CONGESTIVE [None]
